FAERS Safety Report 21713050 (Version 1)
Quarter: 2022Q4

REPORT INFORMATION
  Report Type: Spontaneous
  Country: US (occurrence: US)
  Receive Date: 20221212
  Receipt Date: 20221212
  Transmission Date: 20230112
  Serious: No
  Sender: FDA-Public Use
  Company Number: US-TAKEDA-2022TUS093328

PATIENT
  Sex: Female
  Weight: 47 kg

DRUGS (3)
  1. MOTEGRITY [Suspect]
     Active Substance: PRUCALOPRIDE SUCCINATE
     Indication: Inflammatory bowel disease
     Dosage: 2 MILLIGRAM
     Route: 065
  2. TRULANCE [Concomitant]
     Active Substance: PLECANATIDE
     Dosage: UNK
  3. KRISTALOSE [Concomitant]
     Active Substance: LACTULOSE
     Dosage: UNK

REACTIONS (3)
  - Drug hypersensitivity [Unknown]
  - Constipation [Unknown]
  - Gastrointestinal motility disorder [Unknown]
